FAERS Safety Report 4967596-2 (Version None)
Quarter: 2006Q2

REPORT INFORMATION
  Report Type: 
  Country: None (occurrence: None)
  Receive Date: 20060407
  Receipt Date: 20060407
  Transmission Date: 20061013
  Serious: No
  Sender: FDA-Public Use
  Company Number: None

PATIENT
  Age: 50 Year
  Sex: Female
  Weight: 79.3795 kg

DRUGS (1)
  1. TRAZODONE HCL [Suspect]
     Indication: FIBROMYALGIA
     Dosage: 1 TABLET   HS   PO
     Route: 048
     Dates: start: 20060303, end: 20060404

REACTIONS (4)
  - DRUG INEFFECTIVE [None]
  - EARLY MORNING AWAKENING [None]
  - INSOMNIA [None]
  - PHARMACEUTICAL PRODUCT COMPLAINT [None]
